FAERS Safety Report 4665965-1 (Version None)
Quarter: 2005Q2

REPORT INFORMATION
  Report Type: 
  Country: None (occurrence: None)
  Receive Date: 20050517
  Receipt Date: 20050517
  Transmission Date: 20051028
  Serious: Yes (Hospitalization)
  Sender: FDA-Public Use
  Company Number: None

PATIENT
  Age: 60 Year
  Sex: Male
  Weight: 109.6344 kg

DRUGS (2)
  1. LITHIUM CARBONATE [Suspect]
     Indication: BIPOLAR DISORDER
     Dosage: 350MG  TID   ORAL
     Route: 048
     Dates: start: 19950713, end: 20050502
  2. LASIX [Concomitant]

REACTIONS (6)
  - BLOOD CREATININE INCREASED [None]
  - GRANULOMA [None]
  - HYPERCALCAEMIA [None]
  - PARATHYROID DISORDER [None]
  - POLYURIA [None]
  - RENAL FAILURE ACUTE [None]
